FAERS Safety Report 15150649 (Version 29)
Quarter: 2020Q2

REPORT INFORMATION
  Report Type: Report from Study
  Country: DE (occurrence: DE)
  Receive Date: 20180716
  Receipt Date: 20200601
  Transmission Date: 20200713
  Serious: Yes (Death, Hospitalization, Other)
  Sender: FDA-Public Use
  Company Number: DE-BRISTOL-MYERS SQUIBB COMPANY-BMS-2018-059738

PATIENT
  Age: 59 Year
  Sex: Male
  Weight: 89.97 kg

DRUGS (3)
  1. NIVOLUMAB [Suspect]
     Active Substance: NIVOLUMAB
     Indication: RENAL CELL CARCINOMA
     Dosage: UNK, Q2WK
     Route: 042
     Dates: start: 20171211
  2. CABOZANTINIB [Suspect]
     Active Substance: CABOZANTINIB
     Indication: NEOPLASM PROGRESSION
     Dosage: 60 MG, UNK
     Route: 048
     Dates: start: 20180910
  3. CABOZANTINIB [Suspect]
     Active Substance: CABOZANTINIB
     Indication: RENAL CELL CARCINOMA
     Route: 065

REACTIONS (25)
  - General physical health deterioration [Recovered/Resolved]
  - Palpitations [Recovered/Resolved]
  - Hyperhidrosis [Recovered/Resolved]
  - Malignant neoplasm progression [Not Recovered/Not Resolved]
  - Metastases to adrenals [Unknown]
  - Dyspnoea [Unknown]
  - Fatigue [Recovered/Resolved]
  - Pain [Recovered/Resolved]
  - Pyrexia [Recovered/Resolved]
  - Abdominal pain upper [Unknown]
  - Hepatic enzyme increased [Unknown]
  - Colitis [Recovered/Resolved]
  - Iron deficiency anaemia [Unknown]
  - Acute myocardial infarction [Recovered/Resolved]
  - Diarrhoea [Unknown]
  - Dizziness [Recovered/Resolved]
  - Arthralgia [Not Recovered/Not Resolved]
  - Ileus [Fatal]
  - Flank pain [Unknown]
  - Headache [Recovered/Resolved]
  - Peritonitis bacterial [Fatal]
  - Hyperkalaemia [Recovered/Resolved]
  - Pneumonia [Recovered/Resolved]
  - Pulmonary oedema [Recovered/Resolved]
  - Pain in extremity [Unknown]

NARRATIVE: CASE EVENT DATE: 20180123
